FAERS Safety Report 14818301 (Version 1)
Quarter: 2018Q2

REPORT INFORMATION
  Report Type: Spontaneous
  Country: IT (occurrence: IT)
  Receive Date: 20180427
  Receipt Date: 20180427
  Transmission Date: 20180711
  Serious: Yes (Other)
  Sender: FDA-Public Use
  Company Number: IT-TEVA-2018-IT-885859

PATIENT
  Age: 82 Year
  Sex: Male

DRUGS (5)
  1. ALPRAZOLAM. [Suspect]
     Active Substance: ALPRAZOLAM
     Indication: PSYCHOTIC DISORDER
     Route: 048
     Dates: start: 201701, end: 20170619
  2. SEROQUEL [Suspect]
     Active Substance: QUETIAPINE FUMARATE
     Indication: PSYCHOTIC DISORDER
     Route: 048
     Dates: start: 201701, end: 20170619
  3. SELEPARINA 3.800 U.I. ANTIXA/0,4 ML SOLUZIONE INIETTABILE [Concomitant]
  4. LANSOX [Concomitant]
     Active Substance: LANSOPRAZOLE
     Route: 048
  5. CARDIRENE 75 MG [Concomitant]
     Active Substance: ASPIRIN DL-LYSINE

REACTIONS (3)
  - Aggression [Unknown]
  - Agitation [Unknown]
  - Intentional self-injury [Unknown]

NARRATIVE: CASE EVENT DATE: 20170619
